FAERS Safety Report 24018301 (Version 7)
Quarter: 2025Q1

REPORT INFORMATION
  Report Type: Report from Study
  Country: US (occurrence: US)
  Receive Date: 20240627
  Receipt Date: 20250116
  Transmission Date: 20250409
  Serious: Yes (Hospitalization)
  Sender: ROCHE
  Company Number: US-ROCHE-10000006802

PATIENT
  Age: 27 Year
  Sex: Male
  Weight: 124.28 kg

DRUGS (2)
  1. EVRYSDI [Suspect]
     Active Substance: RISDIPLAM
     Indication: Spinal muscular atrophy
     Dosage: 80 MG BOTTLE. DOSE IS 6.6ML
     Route: 048
     Dates: start: 202208
  2. EVRYSDI [Suspect]
     Active Substance: RISDIPLAM
     Dosage: 80 MG BOTTLE. DOSE IS 6.6ML
     Route: 048
     Dates: start: 20220121, end: 20230120

REACTIONS (13)
  - Accidental overdose [Unknown]
  - Nausea [Unknown]
  - Vomiting [Unknown]
  - Product dose omission issue [Unknown]
  - Femur fracture [Recovered/Resolved]
  - Abdominal distension [Unknown]
  - Pain [Unknown]
  - Muscular weakness [Unknown]
  - Fall [Unknown]
  - Tachycardia [Unknown]
  - Abdominal discomfort [Unknown]
  - Anxiety [Recovered/Resolved]
  - Hypertension [Recovered/Resolved]

NARRATIVE: CASE EVENT DATE: 20240601
